FAERS Safety Report 14537355 (Version 1)
Quarter: 2018Q1

REPORT INFORMATION
  Report Type: Spontaneous
  Country: CZ (occurrence: CZ)
  Receive Date: 20180215
  Receipt Date: 20180215
  Transmission Date: 20180509
  Serious: Yes (Other)
  Sender: FDA-Public Use
  Company Number: CZ-BEH-2018087817

PATIENT
  Age: 73 Year
  Sex: Male
  Weight: 92 kg

DRUGS (7)
  1. METRONIDAZOL                       /00012501/ [Concomitant]
     Active Substance: METRONIDAZOLE
     Route: 065
  2. PRIVIGEN [Suspect]
     Active Substance: HUMAN IMMUNOGLOBULIN G
     Indication: CHRONIC LYMPHOCYTIC LEUKAEMIA
     Dosage: 100 MG/ML, QD
     Route: 042
     Dates: start: 20180123, end: 20180123
  3. DEGAN [Concomitant]
     Active Substance: METOCLOPRAMIDE HYDROCHLORIDE
     Route: 065
  4. FRAXIPARIN                         /00889603/ [Concomitant]
     Active Substance: HEPARIN CALCIUM
     Route: 065
  5. CONTROLOC [Concomitant]
     Active Substance: PANTOPRAZOLE SODIUM
     Route: 065
  6. AMOKSIKLAV                         /00756801/ [Concomitant]
     Route: 065
  7. ACIDUM ASCORBICUM [Concomitant]
     Route: 065

REACTIONS (6)
  - Hypertension [Unknown]
  - Supraventricular tachycardia [Unknown]
  - Chills [Unknown]
  - Stridor [Unknown]
  - Pyrexia [Unknown]
  - Restlessness [Unknown]

NARRATIVE: CASE EVENT DATE: 20180123
